FAERS Safety Report 6162929-6 (Version None)
Quarter: 2009Q2

REPORT INFORMATION
  Report Type: 
  Country: None (occurrence: None)
  Receive Date: 20090417
  Receipt Date: 20090406
  Transmission Date: 20091009
  Serious: Yes (Other)
  Sender: FDA-Public Use
  Company Number: 2009AP001369

PATIENT
  Age: 73 Year
  Sex: Female

DRUGS (5)
  1. FLUOXETINE HCL [Suspect]
     Indication: DEPRESSION
     Dosage: 20 MG; QD
  2. FENTANYL [Suspect]
     Indication: ANALGESIA
     Dosage: 25 UG TDER
     Route: 062
  3. TRAMADOL HCL [Suspect]
     Indication: ANALGESIA
     Dosage: 50 MG, Q8H
  4. LINEZOLID [Suspect]
     Indication: ANTIBIOTIC THERAPY
     Dosage: 00 MG;Q12H
  5. ACETAMINOPHEN [Concomitant]

REACTIONS (9)
  - DRUG INTERACTION [None]
  - ENTEROCOCCAL INFECTION [None]
  - ESCHERICHIA INFECTION [None]
  - HYPERHIDROSIS [None]
  - HYPERTENSION [None]
  - OSTEOMYELITIS [None]
  - SEROTONIN SYNDROME [None]
  - TACHYCARDIA [None]
  - TREMOR [None]
